FAERS Safety Report 17641330 (Version 1)
Quarter: 2020Q2

REPORT INFORMATION
  Report Type: Spontaneous
  Country: US (occurrence: US)
  Receive Date: 20200408
  Receipt Date: 20200408
  Transmission Date: 20200713
  Serious: Yes (Hospitalization)
  Sender: FDA-Public Use
  Company Number: US-SUN PHARMACEUTICAL INDUSTRIES LTD-2020R1-242569

PATIENT
  Age: 28 Year
  Sex: Male

DRUGS (2)
  1. ETOPSIDE [Suspect]
     Active Substance: ETOPOSIDE
     Indication: GERM CELL CANCER METASTATIC
     Dosage: UNK
     Route: 065
  2. CARBOPLATIN. [Suspect]
     Active Substance: CARBOPLATIN
     Indication: GERM CELL CANCER METASTATIC
     Dosage: UNK
     Route: 065

REACTIONS (6)
  - Pancytopenia [Recovering/Resolving]
  - Fanconi syndrome [Recovering/Resolving]
  - Clostridium test positive [Recovering/Resolving]
  - Diarrhoea [Recovering/Resolving]
  - Candida test positive [Recovering/Resolving]
  - Acute kidney injury [Recovering/Resolving]
